FAERS Safety Report 8566852-9 (Version None)
Quarter: 2012Q3

REPORT INFORMATION
  Report Type: 
  Country: None (occurrence: None)
  Receive Date: 20120803
  Receipt Date: 20110803
  Transmission Date: 20120928
  Serious: No
  Sender: FDA-Public Use
  Company Number: US-ABBOTT-11P-163-0843738-00

PATIENT
  Age: 66 Year
  Sex: Male

DRUGS (3)
  1. NIASPAN [Suspect]
     Indication: HIGH DENSITY LIPOPROTEIN INCREASED
     Route: 048
     Dates: start: 20100701
  2. NIASPAN [Suspect]
     Route: 048
     Dates: start: 20110726
  3. NIASPAN [Suspect]
     Route: 048
     Dates: start: 20100101, end: 20110725

REACTIONS (2)
  - BLOOD GLUCOSE INCREASED [None]
  - PLATELET COUNT DECREASED [None]
